FAERS Safety Report 5820187-3 (Version None)
Quarter: 2008Q3

REPORT INFORMATION
  Report Type: 
  Country: None (occurrence: None)
  Receive Date: 20080721
  Receipt Date: 20080714
  Transmission Date: 20090109
  Serious: Yes (Death, Other)
  Sender: FDA-Public Use
  Company Number: 163-21880-08070759

PATIENT
  Age: 75 Year
  Sex: Male
  Weight: 57.1532 kg

DRUGS (6)
  1. REVLIMID [Suspect]
     Indication: MULTIPLE MYELOMA
     Dosage: 25 MG, 1 IN 1 D, ORAL
     Route: 048
     Dates: start: 20080616, end: 20080618
  2. DEXAMETHASONE TAB [Concomitant]
  3. ASPIRIN [Concomitant]
  4. DURAGESIC-100 [Concomitant]
  5. ZOFRAN [Concomitant]
  6. OXYCONTIN [Concomitant]

REACTIONS (8)
  - CONTUSION [None]
  - EPISTAXIS [None]
  - HYPOAESTHESIA [None]
  - MULTIPLE MYELOMA [None]
  - MUSCULAR WEAKNESS [None]
  - NEUROPATHY PERIPHERAL [None]
  - PERONEAL NERVE PALSY [None]
  - RASH [None]
